FAERS Safety Report 5740280-3 (Version None)
Quarter: 2008Q2

REPORT INFORMATION
  Report Type: 
  Country: None (occurrence: None)
  Receive Date: 20080516
  Receipt Date: 20080509
  Transmission Date: 20081010
  Serious: Yes (Other)
  Sender: FDA-Public Use
  Company Number: US-ASTRAZENECA-2008UW09861

PATIENT
  Age: 57 Year
  Sex: Female
  Weight: 68 kg

DRUGS (5)
  1. ARIMIDEX [Suspect]
     Route: 048
  2. ASPIRIN [Concomitant]
  3. AVALIDE [Concomitant]
  4. FOSAMAX [Concomitant]
  5. ATENOLOL [Concomitant]

REACTIONS (3)
  - ARTHRITIS [None]
  - HIP ARTHROPLASTY [None]
  - OSTEOPENIA [None]
